FAERS Safety Report 12756057 (Version 1)
Quarter: 2016Q3

REPORT INFORMATION
  Report Type: Spontaneous
  Country: AR (occurrence: AR)
  Receive Date: 20160916
  Receipt Date: 20160916
  Transmission Date: 20161109
  Serious: Yes (Other)
  Sender: FDA-Public Use
  Company Number: AR-FRESENIUS KABI-FK201606591

PATIENT
  Age: 3 Month
  Sex: Male
  Weight: 4.6 kg

DRUGS (15)
  1. SODIUM CHLORIDE. [Suspect]
     Active Substance: SODIUM CHLORIDE
     Indication: PARENTERAL NUTRITION
     Route: 042
  2. WATER. [Suspect]
     Active Substance: WATER
     Indication: PARENTERAL NUTRITION
     Route: 042
  3. SOLUVIT [Suspect]
     Active Substance: VITAMINS
     Indication: PARENTERAL NUTRITION
     Route: 042
  4. DEXTROSE. [Suspect]
     Active Substance: DEXTROSE
     Indication: PARENTERAL NUTRITION
     Route: 042
  5. POTASSIUM CHLORIDE. [Suspect]
     Active Substance: POTASSIUM CHLORIDE
     Indication: PARENTERAL NUTRITION
     Route: 042
  6. CALCIUM GLUCONATE. [Suspect]
     Active Substance: CALCIUM GLUCONATE
     Indication: PARENTERAL NUTRITION
     Route: 042
  7. GLYCOPHOS [Suspect]
     Active Substance: SODIUM GLYCEROPHOSPHATE ANHYDROUS
     Indication: PARENTERAL NUTRITION
     Route: 042
  8. ZINC SULFATE [Suspect]
     Active Substance: ZINC SULFATE\ZINC SULFATE ANHYDROUS
     Indication: PARENTERAL NUTRITION
     Route: 042
  9. MOLYBDENUM [Suspect]
     Active Substance: MOLYBDENUM
     Indication: PARENTERAL NUTRITION
     Route: 042
  10. MAGNESIUM SULPHATE (NOT SPECIFIED) [Suspect]
     Active Substance: MAGNESIUM SULFATE
     Indication: PARENTERAL NUTRITION
     Route: 042
  11. AMINOVEN 15% [Suspect]
     Active Substance: AMINO ACIDS
     Indication: PARENTERAL NUTRITION
     Route: 042
  12. VITALIPID INFANT [Suspect]
     Active Substance: ERGOCALCIFEROL\PHYTONADIONE\TOCOPHEROL\VITAMIN A PALMITATE
     Indication: PARENTERAL NUTRITION
     Route: 042
  13. SMOFLIPID [Suspect]
     Active Substance: FISH OIL\MEDIUM-CHAIN TRIGLYCERIDES\OLIVE OIL\SOYBEAN OIL
     Indication: PARENTERAL NUTRITION
     Route: 042
  14. SELENIO KABI 40 MCG / ML [Suspect]
     Active Substance: SODIUM SELENITE
     Indication: PARENTERAL NUTRITION
     Route: 042
  15. CROMO KABI 4 MCG / ML [Suspect]
     Active Substance: CHROMIC CHLORIDE
     Indication: PARENTERAL NUTRITION
     Route: 042

REACTIONS (1)
  - Pantoea agglomerans infection [Unknown]

NARRATIVE: CASE EVENT DATE: 20160902
